FAERS Safety Report 20894016 (Version 1)
Quarter: 2022Q2

REPORT INFORMATION
  Report Type: Spontaneous
  Country: US (occurrence: None)
  Receive Date: 20220528
  Receipt Date: 20220528
  Transmission Date: 20220721
  Serious: No
  Sender: FDA-Public Use
  Company Number: None

PATIENT
  Age: 66 Year
  Sex: Female
  Weight: 67.5 kg

DRUGS (1)
  1. PAXLOVID [Suspect]
     Active Substance: NIRMATRELVIR\RITONAVIR
     Indication: COVID-19
     Dates: start: 20220513, end: 20220518

REACTIONS (4)
  - SARS-CoV-2 test positive [None]
  - Nasal congestion [None]
  - Cough [None]
  - Condition aggravated [None]

NARRATIVE: CASE EVENT DATE: 20220528
